FAERS Safety Report 8382605-9 (Version None)
Quarter: 2012Q2

REPORT INFORMATION
  Report Type: 
  Country: None (occurrence: None)
  Receive Date: 20120524
  Receipt Date: 20120514
  Transmission Date: 20120825
  Serious: Yes (Hospitalization)
  Sender: FDA-Public Use
  Company Number: US-JNJFOC-20120410349

PATIENT
  Sex: Female
  Weight: 90.72 kg

DRUGS (4)
  1. LISINOPRIL [Concomitant]
     Indication: HYPERTENSION
  2. ANCEF [Concomitant]
  3. XARELTO [Suspect]
     Indication: THROMBOSIS PROPHYLAXIS
     Route: 048
     Dates: start: 20120316
  4. MORPHINE [Concomitant]

REACTIONS (4)
  - HAEMATOMA [None]
  - MEDICATION ERROR [None]
  - ANAEMIA [None]
  - POSTOPERATIVE WOUND INFECTION [None]
